FAERS Safety Report 4364551-0 (Version None)
Quarter: 2004Q2

REPORT INFORMATION
  Report Type: 
  Country: None (occurrence: None)
  Receive Date: 20040521
  Receipt Date: 20040507
  Transmission Date: 20050107
  Serious: Yes (Other)
  Sender: FDA-Public Use
  Company Number: HQWYE768110MAY04

PATIENT
  Age: 63 Year
  Sex: Male

DRUGS (4)
  1. CORDARONE [Suspect]
     Indication: ATRIAL FIBRILLATION
     Dosage: 600 MG 1X PER 1 DAY ORAL
     Route: 048
  2. CORDARONE [Suspect]
     Indication: ATRIAL FLUTTER
     Dosage: 600 MG 1X PER 1 DAY ORAL
     Route: 048
  3. LAMISIL [Suspect]
     Indication: SKIN INFECTION
     Dosage: 250 MG 1X PER 1 DAY ORAL
     Route: 048
  4. DIGOXIN [Concomitant]

REACTIONS (5)
  - ASTHENIA [None]
  - CHILLS [None]
  - HEPATIC FUNCTION ABNORMAL [None]
  - HYPERTONIA [None]
  - PYREXIA [None]
